FAERS Safety Report 13555368 (Version 5)
Quarter: 2017Q4

REPORT INFORMATION
  Report Type: Spontaneous
  Country: US (occurrence: US)
  Receive Date: 20170517
  Receipt Date: 20171011
  Transmission Date: 20180320
  Serious: Yes (Other)
  Sender: FDA-Public Use
  Company Number: US-BAYER-2017-092117

PATIENT
  Sex: Female

DRUGS (3)
  1. CLIMARA PRO [Suspect]
     Active Substance: ESTRADIOL\LEVONORGESTREL
     Indication: HOT FLUSH
  2. ESTRACE [Suspect]
     Active Substance: ESTRADIOL
     Dosage: UNK
     Route: 067
  3. CLIMARA PRO [Suspect]
     Active Substance: ESTRADIOL\LEVONORGESTREL
     Indication: MENOPAUSAL SYMPTOMS
     Dosage: UNK
     Route: 062
     Dates: start: 2016, end: 201705

REACTIONS (11)
  - Postmenopausal haemorrhage [Recovered/Resolved]
  - Wrong technique in device usage process [Unknown]
  - Musculoskeletal disorder [Not Recovered/Not Resolved]
  - Drug dose omission [None]
  - Application site irritation [Not Recovered/Not Resolved]
  - Application site pruritus [Unknown]
  - Hot flush [None]
  - Endometrial atrophy [Not Recovered/Not Resolved]
  - Menopausal symptoms [Not Recovered/Not Resolved]
  - Product adhesion issue [Unknown]
  - Feeling abnormal [None]

NARRATIVE: CASE EVENT DATE: 2016
